FAERS Safety Report 14149069 (Version 4)
Quarter: 2017Q4

REPORT INFORMATION
  Report Type: Spontaneous
  Country: JP (occurrence: JP)
  Receive Date: 20171101
  Receipt Date: 20171117
  Transmission Date: 20180321
  Serious: Yes (Hospitalization, Other)
  Sender: FDA-Public Use
  Company Number: JP-AMGEN-JPNSP2017163347

PATIENT
  Age: 69 Year
  Sex: Female

DRUGS (10)
  1. VASOLAN [Concomitant]
     Active Substance: VERAPAMIL HYDROCHLORIDE
     Dosage: UNK
  2. CARTARETIN [Concomitant]
     Active Substance: CALCIUM CARBONATE
     Dosage: UNK
  3. FESIN [Concomitant]
     Active Substance: IRON SUCROSE
     Dosage: UNK
  4. PARSABIV [Suspect]
     Active Substance: ETELCALCETIDE HYDROCHLORIDE
     Indication: HYPERPARATHYROIDISM SECONDARY
     Dosage: 7.5 MG, 3 TIMES/WK
     Route: 042
     Dates: start: 20170815
  5. NESP [Concomitant]
     Active Substance: DARBEPOETIN ALFA
     Indication: PRODUCT USED FOR UNKNOWN INDICATION
     Dosage: UNK
     Route: 065
  6. CARTINE [Concomitant]
     Dosage: UNK
  7. KIKLIN [Concomitant]
     Active Substance: BIXALOMER
     Dosage: UNK
  8. ONEALFA [Concomitant]
     Active Substance: ALFACALCIDOL
     Dosage: UNK
  9. SIGMART [Concomitant]
     Active Substance: NICORANDIL
     Dosage: UNK
  10. LANSOPRAZOLE. [Concomitant]
     Active Substance: LANSOPRAZOLE
     Dosage: UNK

REACTIONS (1)
  - Shunt occlusion [Recovered/Resolved]

NARRATIVE: CASE EVENT DATE: 20171024
